FAERS Safety Report 18965767 (Version 2)
Quarter: 2021Q1

REPORT INFORMATION
  Report Type: Spontaneous
  Country: US (occurrence: US)
  Receive Date: 20210304
  Receipt Date: 20210310
  Transmission Date: 20210420
  Serious: Yes (Death, Life-Threatening, Hospitalization, Other)
  Sender: FDA-Public Use
  Company Number: US-BAXTER-2021BAX004223

PATIENT
  Age: 35 Year
  Sex: Female

DRUGS (2)
  1. DOXIL [Suspect]
     Active Substance: DOXORUBICIN HYDROCHLORIDE
     Indication: OSTEOSARCOMA
     Dosage: UNK
     Route: 065
  2. CISPLATIN. [Concomitant]
     Active Substance: CISPLATIN
     Indication: OSTEOSARCOMA
     Route: 065

REACTIONS (11)
  - Cardiac failure [Fatal]
  - Myocardial fibrosis [Fatal]
  - Congestive hepatopathy [Fatal]
  - Pericardial effusion [Fatal]
  - Cardiogenic shock [Fatal]
  - Pulse absent [Fatal]
  - Cardiotoxicity [Fatal]
  - Respiratory failure [Fatal]
  - Cardiorenal syndrome [Fatal]
  - Pulmonary congestion [Fatal]
  - Pulmonary oedema [Fatal]
